FAERS Safety Report 17469024 (Version 1)
Quarter: 2020Q1

REPORT INFORMATION
  Report Type: Report from Study
  Country: DE (occurrence: DE)
  Receive Date: 20200227
  Receipt Date: 20200227
  Transmission Date: 20200409
  Serious: Yes (Death, Life-Threatening, Hospitalization, Other)
  Sender: FDA-Public Use
  Company Number: DE-BAXTER-2020BAX004493

PATIENT
  Age: 84 Year
  Sex: Female
  Weight: 50 kg

DRUGS (85)
  1. PREDNISONE. [Suspect]
     Active Substance: PREDNISONE
     Route: 048
     Dates: start: 20181025, end: 20181029
  2. RITUXIMAB. [Suspect]
     Active Substance: RITUXIMAB
     Route: 041
     Dates: start: 20181106, end: 20181106
  3. RITUXIMAB. [Suspect]
     Active Substance: RITUXIMAB
     Route: 041
     Dates: start: 20181220, end: 20181220
  4. VINCRISTINE [Suspect]
     Active Substance: VINCRISTINE
     Route: 041
     Dates: start: 20181011, end: 20181011
  5. VINCRISTINE [Suspect]
     Active Substance: VINCRISTINE
     Route: 041
     Dates: start: 20181221, end: 20181221
  6. SOLU DECORTIN [Concomitant]
     Active Substance: PREDNISOLONE SODIUM SUCCINATE
     Indication: PROPHYLAXIS
     Route: 042
     Dates: start: 20180927, end: 20181220
  7. METOCLOPRAMIDE. [Concomitant]
     Active Substance: METOCLOPRAMIDE
     Indication: GENERAL PHYSICAL CONDITION
     Route: 048
     Dates: start: 20181030
  8. PANTOPRAZOL [Concomitant]
     Active Substance: PANTOPRAZOLE SODIUM
     Indication: GENERAL PHYSICAL CONDITION
     Route: 048
  9. DOXIL [Suspect]
     Active Substance: DOXORUBICIN HYDROCHLORIDE
     Indication: DIFFUSE LARGE B-CELL LYMPHOMA
     Route: 041
     Dates: start: 20180928, end: 20180928
  10. DOXIL [Suspect]
     Active Substance: DOXORUBICIN HYDROCHLORIDE
     Route: 041
     Dates: start: 20181107, end: 20181107
  11. DOXIL [Suspect]
     Active Substance: DOXORUBICIN HYDROCHLORIDE
     Route: 041
     Dates: start: 20181220, end: 20181220
  12. DOXIL [Suspect]
     Active Substance: DOXORUBICIN HYDROCHLORIDE
     Route: 041
     Dates: start: 20181221, end: 20181221
  13. ENDOXAN 1G [Suspect]
     Active Substance: CYCLOPHOSPHAMIDE
     Route: 041
     Dates: start: 20181107, end: 20181107
  14. PREDNISONE. [Suspect]
     Active Substance: PREDNISONE
     Route: 048
     Dates: start: 20181108, end: 20181112
  15. RITUXIMAB. [Suspect]
     Active Substance: RITUXIMAB
     Route: 041
     Dates: start: 20181129, end: 20181129
  16. VINCRISTINE [Suspect]
     Active Substance: VINCRISTINE
     Route: 041
     Dates: start: 20181025, end: 20181025
  17. VINCRISTINE [Suspect]
     Active Substance: VINCRISTINE
     Route: 041
     Dates: start: 20181107, end: 20181107
  18. PARACETAMOL [Concomitant]
     Active Substance: ACETAMINOPHEN
     Route: 048
     Dates: start: 20181106
  19. BISOPROLOL [Concomitant]
     Active Substance: BISOPROLOL
     Indication: GENERAL PHYSICAL CONDITION
     Route: 048
  20. ONDANSETRON [Concomitant]
     Active Substance: ONDANSETRON
     Indication: GENERAL PHYSICAL CONDITION
     Route: 048
     Dates: start: 20181030
  21. DOXIL [Suspect]
     Active Substance: DOXORUBICIN HYDROCHLORIDE
     Route: 041
     Dates: start: 20181129, end: 20181129
  22. ENDOXAN 1G [Suspect]
     Active Substance: CYCLOPHOSPHAMIDE
     Indication: DIFFUSE LARGE B-CELL LYMPHOMA
     Route: 041
     Dates: start: 20180928, end: 20180928
  23. ENDOXAN 1G [Suspect]
     Active Substance: CYCLOPHOSPHAMIDE
     Route: 041
     Dates: start: 20181221, end: 20181221
  24. PREDNISONE. [Suspect]
     Active Substance: PREDNISONE
     Route: 048
     Dates: start: 20181107, end: 20181111
  25. PREDNISONE. [Suspect]
     Active Substance: PREDNISONE
     Route: 048
     Dates: start: 20181221, end: 20181224
  26. RITUXIMAB. [Suspect]
     Active Substance: RITUXIMAB
     Indication: DIFFUSE LARGE B-CELL LYMPHOMA
     Route: 041
     Dates: start: 20180927, end: 20180927
  27. RITUXIMAB. [Suspect]
     Active Substance: RITUXIMAB
     Route: 041
     Dates: start: 20181220, end: 20181220
  28. PARACETAMOL [Concomitant]
     Active Substance: ACETAMINOPHEN
     Route: 048
     Dates: end: 20181220
  29. MESNA. [Concomitant]
     Active Substance: MESNA
     Indication: PROPHYLAXIS
     Route: 048
     Dates: start: 20180927, end: 20181220
  30. CLEMASTINE [Concomitant]
     Active Substance: CLEMASTINE
     Indication: PROPHYLAXIS
     Route: 042
     Dates: start: 20180927, end: 20181220
  31. SOLU DECORTIN [Concomitant]
     Active Substance: PREDNISOLONE SODIUM SUCCINATE
     Route: 042
     Dates: start: 20181220, end: 20181220
  32. MOVICOL [Concomitant]
     Active Substance: POLYETHYLENE GLYCOL 3350\POTASSIUM CHLORIDE\SODIUM BICARBONATE\SODIUM CHLORIDE
     Indication: GENERAL PHYSICAL CONDITION
     Route: 048
     Dates: start: 20181030
  33. DOXIL [Suspect]
     Active Substance: DOXORUBICIN HYDROCHLORIDE
     Route: 041
     Dates: start: 20181130, end: 20181130
  34. ENDOXAN 1G [Suspect]
     Active Substance: CYCLOPHOSPHAMIDE
     Route: 041
     Dates: start: 20181130, end: 20181130
  35. ENDOXAN 1G [Suspect]
     Active Substance: CYCLOPHOSPHAMIDE
     Route: 041
     Dates: start: 20181220, end: 20181220
  36. RITUXIMAB. [Suspect]
     Active Substance: RITUXIMAB
     Route: 041
     Dates: start: 20181011, end: 20181011
  37. RITUXIMAB. [Suspect]
     Active Substance: RITUXIMAB
     Route: 041
     Dates: start: 20181108, end: 20181108
  38. VINCRISTINE [Suspect]
     Active Substance: VINCRISTINE
     Route: 041
     Dates: start: 20181130, end: 20181130
  39. VINCRISTINE [Suspect]
     Active Substance: VINCRISTINE
     Route: 041
     Dates: start: 20190111, end: 20190111
  40. RAMIPRIL. [Concomitant]
     Active Substance: RAMIPRIL
     Indication: GENERAL PHYSICAL CONDITION
     Route: 048
  41. SOLU DECORTIN [Concomitant]
     Active Substance: PREDNISOLONE SODIUM SUCCINATE
     Route: 042
     Dates: start: 20181106, end: 20181106
  42. ZOLPIDEM [Concomitant]
     Active Substance: ZOLPIDEM TARTRATE
     Indication: GENERAL PHYSICAL CONDITION
     Route: 048
     Dates: start: 20181030
  43. ELIQUIS [Concomitant]
     Active Substance: APIXABAN
     Indication: GENERAL PHYSICAL CONDITION
     Route: 048
  44. TOREM [Concomitant]
     Active Substance: TORSEMIDE
     Indication: GENERAL PHYSICAL CONDITION
     Route: 048
  45. DOXIL [Suspect]
     Active Substance: DOXORUBICIN HYDROCHLORIDE
     Route: 041
     Dates: start: 20181025, end: 20181025
  46. ENDOXAN 1G [Suspect]
     Active Substance: CYCLOPHOSPHAMIDE
     Route: 041
     Dates: start: 20181025, end: 20181025
  47. ENDOXAN 1G [Suspect]
     Active Substance: CYCLOPHOSPHAMIDE
     Route: 041
     Dates: start: 20181108, end: 20181108
  48. PREDNISONE. [Suspect]
     Active Substance: PREDNISONE
     Route: 048
     Dates: start: 20181011, end: 20181015
  49. PREDNISONE. [Suspect]
     Active Substance: PREDNISONE
     Route: 048
     Dates: start: 20181025, end: 20181029
  50. PREDNISONE. [Suspect]
     Active Substance: PREDNISONE
     Route: 048
     Dates: start: 20181221, end: 20181225
  51. RITUXIMAB. [Suspect]
     Active Substance: RITUXIMAB
     Route: 041
     Dates: start: 20181129, end: 20181129
  52. RITUXIMAB. [Suspect]
     Active Substance: RITUXIMAB
     Route: 041
     Dates: start: 20190110, end: 20190110
  53. VITAMIN D [Concomitant]
     Active Substance: VITAMIN D NOS
     Indication: PROPHYLAXIS
     Route: 048
  54. ACICLOVIR [Concomitant]
     Active Substance: ACYCLOVIR
     Indication: PROPHYLAXIS
     Route: 048
     Dates: start: 20180927, end: 20190102
  55. SOLU DECORTIN [Concomitant]
     Active Substance: PREDNISOLONE SODIUM SUCCINATE
     Route: 042
     Dates: start: 20190110, end: 20190110
  56. SIMVASTIN [Concomitant]
     Active Substance: SIMVASTATIN
     Indication: GENERAL PHYSICAL CONDITION
     Route: 048
  57. DOXIL [Suspect]
     Active Substance: DOXORUBICIN HYDROCHLORIDE
     Route: 041
     Dates: start: 20181011, end: 20181011
  58. DOXIL [Suspect]
     Active Substance: DOXORUBICIN HYDROCHLORIDE
     Route: 041
     Dates: start: 20181108, end: 20181108
  59. PREDNISONE. [Suspect]
     Active Substance: PREDNISONE
     Route: 048
     Dates: start: 20180929, end: 20181001
  60. PREDNISONE. [Suspect]
     Active Substance: PREDNISONE
     Route: 048
     Dates: start: 20181111, end: 20181115
  61. PARACETAMOL [Concomitant]
     Active Substance: ACETAMINOPHEN
     Indication: PROPHYLAXIS
     Route: 048
     Dates: start: 20180927, end: 20181220
  62. EUTHYROX [Concomitant]
     Active Substance: LEVOTHYROXINE SODIUM
     Indication: GENERAL PHYSICAL CONDITION
     Route: 048
  63. DOXIL [Suspect]
     Active Substance: DOXORUBICIN HYDROCHLORIDE
     Route: 041
     Dates: start: 20190111, end: 20190111
  64. ENDOXAN 1G [Suspect]
     Active Substance: CYCLOPHOSPHAMIDE
     Route: 041
     Dates: start: 20181129, end: 20181129
  65. ENDOXAN 1G [Suspect]
     Active Substance: CYCLOPHOSPHAMIDE
     Route: 041
     Dates: start: 20190111, end: 20190111
  66. PREDNISONE. [Suspect]
     Active Substance: PREDNISONE
     Indication: DIFFUSE LARGE B-CELL LYMPHOMA
     Route: 048
     Dates: start: 20180927
  67. PREDNISONE. [Suspect]
     Active Substance: PREDNISONE
     Route: 048
     Dates: start: 20181130, end: 20181203
  68. PREDNISONE. [Suspect]
     Active Substance: PREDNISONE
     Route: 048
     Dates: start: 20190111, end: 20190115
  69. VINCRISTINE [Suspect]
     Active Substance: VINCRISTINE
     Indication: DIFFUSE LARGE B-CELL LYMPHOMA
     Route: 041
     Dates: start: 20180928, end: 20180928
  70. VINCRISTINE [Suspect]
     Active Substance: VINCRISTINE
     Route: 041
     Dates: start: 20181129, end: 20181129
  71. SOLU DECORTIN [Concomitant]
     Active Substance: PREDNISOLONE SODIUM SUCCINATE
     Route: 042
     Dates: start: 20181129, end: 20181129
  72. AMPHOTERICIN [Concomitant]
     Active Substance: AMPHOTERICIN B
     Indication: PROPHYLAXIS
     Route: 003
     Dates: start: 20181002, end: 20181230
  73. DIGIMERCK [Concomitant]
     Active Substance: DIGITOXIN
     Indication: GENERAL PHYSICAL CONDITION
     Route: 048
  74. ENDOXAN 1G [Suspect]
     Active Substance: CYCLOPHOSPHAMIDE
     Route: 041
     Dates: start: 20180928, end: 20180928
  75. ENDOXAN 1G [Suspect]
     Active Substance: CYCLOPHOSPHAMIDE
     Route: 041
     Dates: start: 20181011, end: 20181011
  76. RITUXIMAB. [Suspect]
     Active Substance: RITUXIMAB
     Route: 041
     Dates: start: 20181025, end: 20181025
  77. VINCRISTINE [Suspect]
     Active Substance: VINCRISTINE
     Route: 041
     Dates: start: 20181108, end: 20181108
  78. VINCRISTINE [Suspect]
     Active Substance: VINCRISTINE
     Route: 041
     Dates: start: 20181220, end: 20181220
  79. COTRIM FORTE [Concomitant]
     Active Substance: SULFAMETHOXAZOLE\TRIMETHOPRIM
     Indication: PROPHYLAXIS
     Dosage: 214.2857 MG
     Route: 048
     Dates: start: 20180927, end: 20181220
  80. UROMITEXAN [Concomitant]
     Active Substance: MESNA
     Indication: PROPHYLAXIS
     Route: 042
     Dates: start: 20180928, end: 20181220
  81. PREDNISONE. [Concomitant]
     Active Substance: PREDNISONE
     Indication: PROPHYLAXIS
     Route: 048
     Dates: start: 20180929, end: 20181224
  82. FENISTIL [Concomitant]
     Active Substance: DIMETHINDENE
     Indication: PROPHYLAXIS
     Route: 042
     Dates: start: 20181106
  83. BISACODYL. [Concomitant]
     Active Substance: BISACODYL
     Indication: GENERAL PHYSICAL CONDITION
     Route: 048
     Dates: start: 20181030
  84. ALLOPURINOL. [Concomitant]
     Active Substance: ALLOPURINOL
     Indication: GENERAL PHYSICAL CONDITION
     Route: 048
  85. LOPERAMID [Concomitant]
     Active Substance: LOPERAMIDE
     Indication: GENERAL PHYSICAL CONDITION
     Route: 048
     Dates: start: 20181030

REACTIONS (20)
  - Cachexia [Recovered/Resolved]
  - Alopecia [Unknown]
  - Localised oedema [Recovered/Resolved]
  - Neoplasm progression [Fatal]
  - Pleural effusion [Recovered/Resolved]
  - Anaemia [Not Recovered/Not Resolved]
  - Dyspnoea [Fatal]
  - Leukopenia [Recovered/Resolved]
  - Nausea [Recovered/Resolved]
  - Intra-abdominal haemorrhage [Fatal]
  - Pruritus [Recovered/Resolved]
  - Pain [Fatal]
  - General physical health deterioration [Recovered/Resolved]
  - Thrombocytopenia [Recovered/Resolved]
  - Lymphadenopathy [Fatal]
  - Fatigue [Fatal]
  - Decreased appetite [Not Recovered/Not Resolved]
  - Cough [Fatal]
  - Peripheral sensory neuropathy [Not Recovered/Not Resolved]
  - Chest discomfort [Recovered/Resolved]

NARRATIVE: CASE EVENT DATE: 20181005
